FAERS Safety Report 14017400 (Version 1)
Quarter: 2017Q3

REPORT INFORMATION
  Report Type: Spontaneous
  Country: US (occurrence: US)
  Receive Date: 20170927
  Receipt Date: 20170927
  Transmission Date: 20171128
  Serious: No
  Sender: FDA-Public Use
  Company Number: US-B.I. PHARMACEUTICALS,INC./RIDGEFIELD-2017-BI-051313

PATIENT
  Age: 58 Year
  Sex: Male

DRUGS (1)
  1. OFEV [Suspect]
     Active Substance: NINTEDANIB
     Indication: IDIOPATHIC PULMONARY FIBROSIS
     Dosage: TWICE A DAY;  FORM STRENGTH: 150 MG; FORMULATION: CAPSULE? ADMINISTRATION CORRECT? YES ?ACTION(S) TA
     Route: 055
     Dates: start: 201706, end: 201709

REACTIONS (5)
  - Drug ineffective [Not Recovered/Not Resolved]
  - Dysarthria [Not Recovered/Not Resolved]
  - Diarrhoea [Not Recovered/Not Resolved]
  - Retching [Unknown]
  - Vomiting [Unknown]

NARRATIVE: CASE EVENT DATE: 201706
